FAERS Safety Report 4418407-5 (Version None)
Quarter: 2004Q3

REPORT INFORMATION
  Report Type: 
  Country: None (occurrence: None)
  Receive Date: 20040809
  Receipt Date: 20040415
  Transmission Date: 20050211
  Serious: No
  Sender: FDA-Public Use
  Company Number: US-GLAXOSMITHKLINE-A0507274A

PATIENT
  Age: 73 Year
  Sex: Female

DRUGS (4)
  1. PAXIL [Suspect]
     Indication: DEPRESSION
     Dosage: 12.5MG PER DAY
     Route: 048
  2. COUMADIN [Concomitant]
  3. VASOTEC [Concomitant]
  4. LORAZEPAM [Concomitant]

REACTIONS (1)
  - SOMNOLENCE [None]
